FAERS Safety Report 17884774 (Version 1)
Quarter: 2020Q2

REPORT INFORMATION
  Report Type: Spontaneous
  Country: BR (occurrence: BR)
  Receive Date: 20200611
  Receipt Date: 20200611
  Transmission Date: 20200714
  Serious: Yes (Other)
  Sender: FDA-Public Use
  Company Number: BR-ABBVIE-20K-020-3432267-00

PATIENT
  Age: 27 Year
  Sex: Male
  Weight: 60 kg

DRUGS (7)
  1. DEPAKOTE [Suspect]
     Active Substance: DIVALPROEX SODIUM
     Indication: GENERALISED TONIC-CLONIC SEIZURE
     Dosage: 3 CAPSULES IN MORNING AND 4 AT NIGHT WHEN PATIENT HAD ABSENCE SEIZURES
     Route: 048
  2. DEPAKOTE [Suspect]
     Active Substance: DIVALPROEX SODIUM
     Indication: ANGELMAN^S SYNDROME
  3. KEPPRA [Concomitant]
     Active Substance: LEVETIRACETAM
     Indication: PRODUCT USED FOR UNKNOWN INDICATION
     Dates: start: 201612
  4. SONEBON [Concomitant]
     Indication: PRODUCT USED FOR UNKNOWN INDICATION
  5. DEPAKOTE [Suspect]
     Active Substance: DIVALPROEX SODIUM
     Indication: PETIT MAL EPILEPSY
     Dosage: (6 CAPSULES; IN THE MORNING/AT NIGHT)
     Route: 048
  6. TOPAMAX [Concomitant]
     Active Substance: TOPIRAMATE
     Indication: PRODUCT USED FOR UNKNOWN INDICATION
  7. DEPAKOTE ER [Suspect]
     Active Substance: DIVALPROEX SODIUM
     Indication: PETIT MAL EPILEPSY
     Dosage: USED WHEN PATIENT WAS ADULT
     Route: 065

REACTIONS (9)
  - Abnormal behaviour [Recovered/Resolved]
  - Somnolence [Recovered/Resolved]
  - Petit mal epilepsy [Recovered/Resolved]
  - Insomnia [Recovered/Resolved]
  - Somnolence [Unknown]
  - Insomnia [Unknown]
  - Vomiting [Unknown]
  - Dysstasia [Recovered/Resolved]
  - Angelman^s syndrome [Unknown]

NARRATIVE: CASE EVENT DATE: 201712
